FAERS Safety Report 19509505 (Version 5)
Quarter: 2023Q2

REPORT INFORMATION
  Report Type: Spontaneous
  Country: US (occurrence: US)
  Receive Date: 20210709
  Receipt Date: 20230411
  Transmission Date: 20230722
  Serious: Yes (Other)
  Sender: FDA-Public Use
  Company Number: US-JNJFOC-20210661360

PATIENT
  Sex: Female

DRUGS (12)
  1. AVEENO ABSOLUTELY AGELESS DAILY MOISTURIZER BROAD SPECTRUM SPF30 [Suspect]
     Active Substance: AVOBENZONE\HOMOSALATE\OCTISALATE\OCTOCRYLENE
     Indication: Product used for unknown indication
     Route: 061
  2. AVEENO DAILY MOISTURIZING [Suspect]
     Active Substance: DIMETHICONE
     Indication: Product used for unknown indication
     Route: 061
  3. AVEENO DAILY MOISTURIZING [Suspect]
     Active Substance: DIMETHICONE
     Route: 061
  4. AVEENO DAILY MOISTURIZING [Suspect]
     Active Substance: DIMETHICONE
     Route: 061
  5. COSMETICS [Suspect]
     Active Substance: COSMETICS
     Indication: Product used for unknown indication
     Route: 061
  6. COSMETICS [Suspect]
     Active Substance: COSMETICS
     Indication: Product used for unknown indication
     Route: 061
  7. COSMETICS [Suspect]
     Active Substance: COSMETICS
     Indication: Product used for unknown indication
     Dosage: APPLIED LIBERALLY
     Route: 061
     Dates: start: 20210620, end: 202106
  8. COSMETICS [Suspect]
     Active Substance: COSMETICS
     Indication: Product used for unknown indication
     Route: 061
  9. COSMETICS [Suspect]
     Active Substance: COSMETICS
     Indication: Product used for unknown indication
     Route: 061
  10. COSMETICS [Suspect]
     Active Substance: COSMETICS
     Indication: Product used for unknown indication
     Route: 061
  11. COSMETICS [Suspect]
     Active Substance: COSMETICS
     Indication: Product used for unknown indication
     Route: 061
  12. COSMETICS [Suspect]
     Active Substance: COSMETICS
     Indication: Product used for unknown indication
     Route: 061

REACTIONS (1)
  - Anaphylactic reaction [Recovered/Resolved]

NARRATIVE: CASE EVENT DATE: 20210625
